FAERS Safety Report 19362849 (Version 2)
Quarter: 2022Q2

REPORT INFORMATION
  Report Type: Spontaneous
  Country: JP (occurrence: JP)
  Receive Date: 20210602
  Receipt Date: 20220428
  Transmission Date: 20220721
  Serious: Yes (Disabling)
  Sender: FDA-Public Use
  Company Number: JP-BAYER-2021-150428

PATIENT
  Age: 36 Year
  Sex: Female
  Weight: 48 kg

DRUGS (1)
  1. MIRENA [Suspect]
     Active Substance: LEVONORGESTREL
     Indication: Adenomyosis
     Dosage: 20?G/DAY
     Route: 015
     Dates: start: 20170218

REACTIONS (6)
  - Immune thrombocytopenia [None]
  - Haemorrhagic diathesis [None]
  - Intermenstrual bleeding [None]
  - Amenorrhoea [None]
  - Off label use of device [None]
  - Platelet count decreased [None]
